FAERS Safety Report 6069175-5 (Version None)
Quarter: 2009Q1

REPORT INFORMATION
  Report Type: 
  Country: None (occurrence: None)
  Receive Date: 20090206
  Receipt Date: 20090127
  Transmission Date: 20090719
  Serious: Yes (Other)
  Sender: FDA-Public Use
  Company Number: JP-JNJFOC-20090201637

PATIENT
  Age: 37 Year
  Sex: Male

DRUGS (1)
  1. TOPINA [Suspect]
     Indication: DRUG USE FOR UNKNOWN INDICATION
     Route: 048

REACTIONS (2)
  - CALCULUS BLADDER [None]
  - NEPHROLITHIASIS [None]
